FAERS Safety Report 6699816-0 (Version None)
Quarter: 2010Q2

REPORT INFORMATION
  Report Type: 
  Country: None (occurrence: None)
  Receive Date: 20100428
  Receipt Date: 20090401
  Transmission Date: 20101027
  Serious: No
  Sender: FDA-Public Use
  Company Number: A0829552A

PATIENT
  Age: 46 Year
  Sex: Female
  Weight: 68 kg

DRUGS (6)
  1. LUXIQ [Suspect]
     Route: 061
     Dates: start: 20090301, end: 20090822
  2. LUXIQ [Suspect]
     Dates: start: 20090831
  3. OLUX [Suspect]
     Route: 061
     Dates: start: 20090301, end: 20090101
  4. OLUX [Suspect]
     Dates: start: 20090601
  5. VALTREX [Concomitant]
     Indication: GENITAL HERPES
  6. DESONIDE [Concomitant]
     Indication: DERMATITIS
     Route: 061
     Dates: start: 20080101

REACTIONS (12)
  - ALOPECIA [None]
  - CONDITION AGGRAVATED [None]
  - DRUG ADMINISTERED AT INAPPROPRIATE SITE [None]
  - DRUG INEFFECTIVE [None]
  - HAIR TEXTURE ABNORMAL [None]
  - INAPPROPRIATE SCHEDULE OF DRUG ADMINISTRATION [None]
  - INCORRECT DRUG ADMINISTRATION DURATION [None]
  - JOINT SWELLING [None]
  - OEDEMA PERIPHERAL [None]
  - TRICHORRHEXIS [None]
  - WEIGHT INCREASED [None]
  - WRONG TECHNIQUE IN DRUG USAGE PROCESS [None]
